FAERS Safety Report 8228520-2 (Version None)
Quarter: 2012Q1

REPORT INFORMATION
  Report Type: 
  Country: None (occurrence: None)
  Receive Date: 20120322
  Receipt Date: 20110511
  Transmission Date: 20120608
  Serious: Yes (Hospitalization)
  Sender: FDA-Public Use
  Company Number: US-BRISTOL-MYERS SQUIBB COMPANY-15736135

PATIENT
  Age: 52 Year
  Sex: Female

DRUGS (2)
  1. ERBITUX [Suspect]
     Dosage: 02MAY2011, SHE RECEIVED HER SECOND TREATMENT OF ERBITUX
  2. DILAUDID [Concomitant]

REACTIONS (2)
  - DIARRHOEA [None]
  - VOMITING [None]
